FAERS Safety Report 25607375 (Version 2)
Quarter: 2025Q3

REPORT INFORMATION
  Report Type: Spontaneous
  Country: CN (occurrence: CN)
  Receive Date: 20250725
  Receipt Date: 20250804
  Transmission Date: 20251020
  Serious: Yes (Other)
  Sender: AMGEN
  Company Number: CN-AMGEN-CHNSP2025143150

PATIENT

DRUGS (9)
  1. FILGRASTIM [Suspect]
     Active Substance: FILGRASTIM
     Indication: Neutropenia
     Dosage: UNK, QD, 5-7 MG/KG, DAY FIVE TO NEUTROPHIL RECOVEIY
     Route: 065
  2. ROMIPLOSTIM [Suspect]
     Active Substance: ROMIPLOSTIM
     Indication: Delayed platelet engraftment
     Dosage: 250 MICROGRAM, QWK  UNTIL PLATELET ENGRAFTMENT AFTER UCBT
     Route: 058
  3. FLUDARABINE [Concomitant]
     Active Substance: FLUDARABINE PHOSPHATE
     Indication: Product used for unknown indication
     Dosage: 30 MILLIGRAM/SQ. METER, QD, Y FOR 4 DAYS)
  4. BUSULFAN [Concomitant]
     Active Substance: BUSULFAN
     Indication: Product used for unknown indication
     Dosage: 3.2 MILLIGRAM/KILOGRAM, QD, FOR 4 DAYS,
  5. CYCLOPHOSPHAMIDE [Concomitant]
     Active Substance: CYCLOPHOSPHAMIDE
     Indication: Product used for unknown indication
     Dosage: 60 MILLIGRAM/KILOGRAM, QD, FOR 2 DAYS
  6. CYCLOSPORINE [Concomitant]
     Active Substance: CYCLOSPORINE
     Indication: Prophylaxis
  7. MYCOPHENOLATE MOFETIL [Concomitant]
     Active Substance: MYCOPHENOLATE MOFETIL
     Indication: Prophylaxis
  8. HEPARIN [Concomitant]
     Active Substance: HEPARIN SODIUM
     Indication: Product used for unknown indication
     Dosage: 100 INTERNATIONAL UNIT/KILOGRAM, QD
  9. PROSTAGLANDIN E1 [Concomitant]
     Active Substance: ALPROSTADIL
     Indication: Product used for unknown indication

REACTIONS (10)
  - Renal impairment [Unknown]
  - Platelet engraftment failure [Unknown]
  - Cytomegalovirus infection reactivation [Unknown]
  - Acute graft versus host disease [Unknown]
  - Hepatic function abnormal [Unknown]
  - Anti-HLA antibody test positive [Unknown]
  - Headache [Unknown]
  - Insomnia [Unknown]
  - Diarrhoea [Unknown]
  - Fatigue [Unknown]
